FAERS Safety Report 8383079-4 (Version None)
Quarter: 2012Q2

REPORT INFORMATION
  Report Type: 
  Country: None (occurrence: None)
  Receive Date: 20120524
  Receipt Date: 20120511
  Transmission Date: 20120825
  Serious: Yes (Hospitalization, Other)
  Sender: FDA-Public Use
  Company Number: JP-JNJFOC-20120411274

PATIENT
  Sex: Male
  Weight: 68.1 kg

DRUGS (12)
  1. PRIMPERAN TAB [Concomitant]
     Indication: CROHN'S DISEASE
     Dosage: 15MG-5MG
     Route: 048
     Dates: start: 20061109
  2. REMICADE [Suspect]
     Indication: CROHN'S DISEASE
     Dosage: A TOTAL OF 50 DOSES ADMINISTERED
     Route: 042
     Dates: start: 20101026
  3. REMICADE [Suspect]
     Route: 042
     Dates: start: 20050105
  4. PENTASA [Concomitant]
     Indication: CROHN'S DISEASE
     Dosage: 150-500MG
     Route: 048
     Dates: start: 20030731
  5. LEVOFLOXACIN [Concomitant]
     Route: 048
  6. REMICADE [Suspect]
     Dosage: A TOTAL OF 50 DOSES ADMINISTERED
     Route: 042
     Dates: start: 20100819
  7. BIO THREE [Concomitant]
     Indication: CROHN'S DISEASE
     Dosage: 3 TAB-1 TAB
     Route: 048
     Dates: start: 20100722
  8. REMICADE [Suspect]
     Route: 042
     Dates: start: 20110315
  9. LOXONIN [Concomitant]
     Indication: CROHN'S DISEASE
     Dosage: AS NEEDED
     Route: 048
     Dates: start: 20030731
  10. PYRINAZIN [Concomitant]
     Indication: CROHN'S DISEASE
     Dosage: 1.5G-0.5G
     Route: 048
     Dates: start: 20061028
  11. ZOLPIDEM [Concomitant]
     Indication: INSOMNIA
     Dosage: AS NEEDED
     Route: 048
     Dates: start: 20070911
  12. REMICADE [Suspect]
     Route: 042
     Dates: start: 20020901

REACTIONS (11)
  - PNEUMONIA [None]
  - ALTERED STATE OF CONSCIOUSNESS [None]
  - ABDOMINAL PAIN [None]
  - ANAEMIA [None]
  - STAPHYLOCOCCAL INFECTION [None]
  - MELAENA [None]
  - PROCTALGIA [None]
  - RECTAL DISCHARGE [None]
  - DEHYDRATION [None]
  - SEPTIC EMBOLUS [None]
  - DEVICE RELATED INFECTION [None]
